FAERS Safety Report 26060297 (Version 1)
Quarter: 2025Q4

REPORT INFORMATION
  Report Type: Spontaneous
  Country: US (occurrence: US)
  Receive Date: 20251118
  Receipt Date: 20251118
  Transmission Date: 20260117
  Serious: Yes (Hospitalization)
  Sender: BRAINTREE
  Company Number: US-BRAINTREE LABORATORIES, INC.-2025BTE00695

PATIENT
  Age: 4 Month
  Sex: Female

DRUGS (2)
  1. GOLYTELY [Suspect]
     Active Substance: POLYETHYLENE GLYCOL 3350\POTASSIUM CHLORIDE\SODIUM BICARBONATE\SODIUM CHLORIDE\SODIUM SULFATE
     Indication: Bowel preparation
     Dosage: 100 ML/HR (25 ML/KG/HR)
  2. SALINE [Concomitant]
     Active Substance: SODIUM CHLORIDE
     Indication: Bowel preparation

REACTIONS (3)
  - Encephalopathy [Unknown]
  - Hypernatraemia [Recovering/Resolving]
  - Product preparation issue [Recovered/Resolved]
